FAERS Safety Report 13776208 (Version 2)
Quarter: 2017Q4

REPORT INFORMATION
  Report Type: Spontaneous
  Country: US (occurrence: US)
  Receive Date: 20170720
  Receipt Date: 20171024
  Transmission Date: 20180320
  Serious: No
  Sender: FDA-Public Use
  Company Number: US-009507513-1707USA006548

PATIENT
  Age: 61 Year
  Sex: Male
  Weight: 91.61 kg

DRUGS (1)
  1. ZEPATIER [Suspect]
     Active Substance: ELBASVIR\GRAZOPREVIR
     Indication: HEPATITIS C
     Dosage: 500/100 MG DAILY
     Route: 048
     Dates: start: 20170602, end: 20170826

REACTIONS (9)
  - Diplopia [Unknown]
  - Dyspnoea [Unknown]
  - Dizziness [Unknown]
  - Dyspepsia [Unknown]
  - Fatigue [Recovering/Resolving]
  - Vision blurred [Unknown]
  - Eye movement disorder [Unknown]
  - Headache [Unknown]
  - Asthenopia [Unknown]

NARRATIVE: CASE EVENT DATE: 201707
